FAERS Safety Report 12155553 (Version 1)
Quarter: 2016Q1

REPORT INFORMATION
  Report Type: Spontaneous
  Country: ES (occurrence: ES)
  Receive Date: 20160307
  Receipt Date: 20160307
  Transmission Date: 20160526
  Serious: Yes (Death)
  Sender: FDA-Public Use
  Company Number: ES-CELGENE-ESP-2016025953

PATIENT

DRUGS (2)
  1. GEMCITABINE [Suspect]
     Active Substance: GEMCITABINE\GEMCITABINE HYDROCHLORIDE
     Indication: PANCREATIC CARCINOMA METASTATIC
     Route: 065
     Dates: start: 201401, end: 201510
  2. ABRAXANE [Suspect]
     Active Substance: PACLITAXEL
     Indication: PANCREATIC CARCINOMA METASTATIC
     Route: 041
     Dates: start: 201401, end: 201510

REACTIONS (13)
  - Death [Fatal]
  - Anaemia [Unknown]
  - Neuropathy peripheral [Unknown]
  - Pancreatic carcinoma metastatic [Unknown]
  - Neutropenia [Unknown]
  - Hepatotoxicity [Unknown]
  - Performance status decreased [Unknown]
  - Nausea [Unknown]
  - Thrombocytopenia [Unknown]
  - Dysgeusia [Unknown]
  - Vomiting [Unknown]
  - Diarrhoea [Unknown]
  - Asthenia [Unknown]
